FAERS Safety Report 12393214 (Version 1)
Quarter: 2016Q2

REPORT INFORMATION
  Report Type: Spontaneous
  Country: US (occurrence: None)
  Receive Date: 20160520
  Receipt Date: 20160520
  Transmission Date: 20160815
  Serious: Yes (Disabling)
  Sender: FDA-Public Use
  Company Number: None

PATIENT
  Age: 40 Year
  Sex: Male
  Weight: 79.38 kg

DRUGS (9)
  1. CYMBALTA [Concomitant]
     Active Substance: DULOXETINE HYDROCHLORIDE
  2. CLONAZPOM [Concomitant]
  3. DAILY MULTI VITAMINS [Concomitant]
  4. ABILIFY [Concomitant]
     Active Substance: ARIPIPRAZOLE
  5. COMPLERA [Suspect]
     Active Substance: EMTRICITABINE\RILPIVIRINE HYDROCHLORIDE\TENOFOVIR DISOPROXIL FUMARATE
     Indication: HIV TEST POSITIVE
     Route: 048
  6. GABAPENTIN. [Concomitant]
     Active Substance: GABAPENTIN
  7. ADDERRAL [Concomitant]
  8. LISINOPRIL. [Concomitant]
     Active Substance: LISINOPRIL
  9. VITAMIN B12 AND NEC [Concomitant]

REACTIONS (5)
  - Paraesthesia [None]
  - Cognitive disorder [None]
  - Hypoaesthesia [None]
  - Neuropathy peripheral [None]
  - Arthritis [None]

NARRATIVE: CASE EVENT DATE: 20140701
